FAERS Safety Report 5974047-8 (Version None)
Quarter: 2008Q4

REPORT INFORMATION
  Report Type: 
  Country: None (occurrence: None)
  Receive Date: 20081201
  Receipt Date: 20080123
  Transmission Date: 20090506
  Serious: No
  Sender: FDA-Public Use
  Company Number: US-AMGEN-KDL262085

PATIENT
  Sex: Female

DRUGS (3)
  1. ENBREL [Suspect]
     Indication: PSORIATIC ARTHROPATHY
     Route: 058
     Dates: start: 20050520
  2. ENBREL [Suspect]
     Indication: PSORIASIS
  3. VALTREX [Concomitant]

REACTIONS (10)
  - CHILLS [None]
  - EAR CONGESTION [None]
  - HERPES ZOSTER [None]
  - NASAL CONGESTION [None]
  - OROPHARYNGEAL PAIN [None]
  - PSORIASIS [None]
  - PSORIATIC ARTHROPATHY [None]
  - PYREXIA [None]
  - RHINORRHOEA [None]
  - SNEEZING [None]
